FAERS Safety Report 22245942 (Version 1)
Quarter: 2023Q2

REPORT INFORMATION
  Report Type: Spontaneous
  Country: BR (occurrence: BR)
  Receive Date: 20230424
  Receipt Date: 20230424
  Transmission Date: 20230722
  Serious: Yes (Death, Life-Threatening, Other)
  Sender: FDA-Public Use
  Company Number: BR-CHIESI-2023CHF02051

PATIENT

DRUGS (1)
  1. CUROSURF [Suspect]
     Active Substance: PORACTANT ALFA
     Indication: Neonatal respiratory distress syndrome
     Dosage: 2 MILLILITER, (1X)
     Route: 042
     Dates: start: 20230216, end: 20230216

REACTIONS (7)
  - Neonatal infection [Fatal]
  - Oxygen saturation decreased [Recovered/Resolved]
  - Condition aggravated [Recovered/Resolved]
  - Decreased activity [Recovered/Resolved]
  - Incorrect route of product administration [Recovered/Resolved]
  - Hypotonia neonatal [Recovered/Resolved]
  - Depressed level of consciousness [Recovered/Resolved]

NARRATIVE: CASE EVENT DATE: 20230216
